FAERS Safety Report 18333012 (Version 2)
Quarter: 2021Q1

REPORT INFORMATION
  Report Type: Spontaneous
  Country: LB (occurrence: LB)
  Receive Date: 20201001
  Receipt Date: 20210220
  Transmission Date: 20210419
  Serious: Yes (Hospitalization, Other)
  Sender: FDA-Public Use
  Company Number: LB-LUPIN PHARMACEUTICALS INC.-2020-06506

PATIENT
  Age: 82 Year
  Sex: Male

DRUGS (4)
  1. IMIPENEM / CILASTATINA [Concomitant]
     Active Substance: CILASTATIN SODIUM\IMIPENEM
     Indication: EVIDENCE BASED TREATMENT
     Dosage: 500 MILLIGRAM, TID
     Route: 065
  2. CEFUROXIME. [Suspect]
     Active Substance: CEFUROXIME
     Indication: PROPHYLAXIS
     Dosage: UNK
     Route: 065
     Dates: start: 201601
  3. MOXIFLOXACIN. [Concomitant]
     Active Substance: MOXIFLOXACIN
     Indication: EVIDENCE BASED TREATMENT
     Dosage: 400 MILLIGRAM, QD
     Route: 065
  4. CEFTRIAXONE. [Suspect]
     Active Substance: CEFTRIAXONE
     Indication: EVIDENCE BASED TREATMENT
     Dosage: 2 GRAM, QD
     Route: 065
     Dates: start: 202004

REACTIONS (6)
  - Condition aggravated [Recovering/Resolving]
  - Pyrexia [Unknown]
  - Drug resistance [Unknown]
  - Dyspnoea [Recovering/Resolving]
  - Somnolence [Recovering/Resolving]
  - C-reactive protein increased [Not Recovered/Not Resolved]

NARRATIVE: CASE EVENT DATE: 20160417
